FAERS Safety Report 9064901 (Version 2)
Quarter: 2013Q1

REPORT INFORMATION
  Report Type: Report from Study
  Country: TR (occurrence: TR)
  Receive Date: 20130206
  Receipt Date: 20130206
  Transmission Date: 20140127
  Serious: Yes (Other)
  Sender: FDA-Public Use
  Company Number: TR-BAYER-2013-012195

PATIENT
  Sex: Female
  Weight: 65 kg

DRUGS (2)
  1. BETAFERON [Suspect]
     Indication: MULTIPLE SCLEROSIS
     Dosage: UNK
     Route: 058
     Dates: start: 20080601
  2. EMTHEXATE [Concomitant]
     Dosage: 25 MG, OW

REACTIONS (1)
  - Rheumatoid arthritis [None]
